FAERS Safety Report 7801782-9 (Version None)
Quarter: 2011Q4

REPORT INFORMATION
  Report Type: 
  Country: None (occurrence: None)
  Receive Date: 20111007
  Receipt Date: 20111004
  Transmission Date: 20120403
  Serious: Yes (Hospitalization, Other)
  Sender: FDA-Public Use
  Company Number: US-BRISTOL-MYERS SQUIBB COMPANY-13784160

PATIENT
  Age: 58 Year
  Sex: Male
  Weight: 82 kg

DRUGS (5)
  1. CISPLATIN [Suspect]
     Indication: HEAD AND NECK CANCER
     Dosage: 2ND DOSE ON 14MAY07-100MG/M2
     Dates: start: 20070416
  2. DURAGESIC-100 [Concomitant]
     Dates: start: 20070514
  3. DILAUDID [Concomitant]
     Route: 042
  4. LORTAB [Concomitant]
  5. CETUXIMAB [Suspect]
     Indication: HEAD AND NECK CANCER
     Dates: start: 20070416, end: 20070430

REACTIONS (8)
  - FACIAL PAIN [None]
  - CONSTIPATION [None]
  - CELLULITIS [None]
  - HYPONATRAEMIA [None]
  - VOMITING [None]
  - DYSPHAGIA [None]
  - NAUSEA [None]
  - DERMATITIS ACNEIFORM [None]
